FAERS Safety Report 4518119-3 (Version None)
Quarter: 2004Q4

REPORT INFORMATION
  Report Type: 
  Country: None (occurrence: None)
  Receive Date: 20041130
  Receipt Date: 20030723
  Transmission Date: 20050328
  Serious: Yes (Hospitalization)
  Sender: FDA-Public Use
  Company Number: HQ1177105MAR2002

PATIENT
  Age: 46 Year
  Sex: Male

DRUGS (10)
  1. RAPAMUNE [Suspect]
     Indication: RENAL TRANSPLANT
     Dosage: SEE IMAGE
     Route: 048
     Dates: start: 20020215
  2. BELOC ZOK (METOPROLOL SUCCINATE) [Concomitant]
  3. CLONIDINE [Concomitant]
  4. DIBLOCIN (DOXAZOSIN MESILATE) [Concomitant]
  5. TOVENE (DIOSMIN) [Concomitant]
  6. ESIDRIX [Concomitant]
  7. DIGITOXIN TAB [Concomitant]
  8. ALLOPURINOL [Concomitant]
  9. METHYLPREDNISOLONE [Concomitant]
  10. KEPINOL (SULFAMETHOXAZOLE/TRIMETHOPRIM) [Concomitant]

REACTIONS (7)
  - ASCITES [None]
  - CONDITION AGGRAVATED [None]
  - HYPERVOLAEMIA [None]
  - PERICARDIAL EFFUSION [None]
  - PLEURAL EFFUSION [None]
  - PULMONARY CONGESTION [None]
  - TRANSPLANT FAILURE [None]
